FAERS Safety Report 14743998 (Version 1)
Quarter: 2018Q2

REPORT INFORMATION
  Report Type: Report from Study
  Country: BR (occurrence: BR)
  Receive Date: 20180411
  Receipt Date: 20180411
  Transmission Date: 20180711
  Serious: Yes (Other)
  Sender: FDA-Public Use
  Company Number: BR-ROCHE-2100560

PATIENT
  Sex: Female
  Weight: 68 kg

DRUGS (3)
  1. PERJETA [Suspect]
     Active Substance: PERTUZUMAB
     Indication: HER-2 POSITIVE BREAST CANCER
     Dosage: FIRST LINE TREATMENT?SHE HAD COMPLETED THE THERAPY AND RECEIVED 18 CYCLES OF PERTUZUMAB IN FIRST-LIN
     Route: 065
     Dates: start: 20160215, end: 20170215
  2. HERCEPTIN [Suspect]
     Active Substance: TRASTUZUMAB
     Indication: HER-2 POSITIVE BREAST CANCER
     Dosage: FIRST LINE?SHE RECEIVED 53 CYCLES OF TRASTUZUMAB IN FIRST-LINE OF TREATMENT. INITIAL DOSE OF 4MG/KG
     Route: 065
     Dates: start: 20160215, end: 20170215
  3. TAXOL [Concomitant]
     Active Substance: PACLITAXEL
     Indication: HER-2 POSITIVE BREAST CANCER
     Route: 065
     Dates: start: 20160215, end: 20170215

REACTIONS (2)
  - Disease recurrence [Unknown]
  - Drug ineffective [Unknown]
